FAERS Safety Report 21355889 (Version 1)
Quarter: 2022Q3

REPORT INFORMATION
  Report Type: Spontaneous
  Country: US (occurrence: None)
  Receive Date: 20220920
  Receipt Date: 20220920
  Transmission Date: 20221027
  Serious: Yes (Other)
  Sender: FDA-Public Use
  Company Number: None

PATIENT
  Age: 43 Year
  Sex: Female
  Weight: 69.75 kg

DRUGS (5)
  1. CLINDAMYCIN [Suspect]
     Active Substance: CLINDAMYCIN
     Indication: Pharyngitis streptococcal
     Dosage: OTHER QUANTITY : 1 CAPSULE(S);?FREQUENCY : 3 TIMES A DAY;?
     Route: 048
     Dates: start: 20220909, end: 20220918
  2. BIOTIN [Concomitant]
     Active Substance: BIOTIN
  3. msm powder [Concomitant]
  4. OMEGA 3 [Concomitant]
     Active Substance: CAPSAICIN
  5. women^s vitamins [Concomitant]

REACTIONS (3)
  - Constipation [None]
  - Abdominal pain upper [None]
  - Rash pruritic [None]

NARRATIVE: CASE EVENT DATE: 20220918
